FAERS Safety Report 6422891-5 (Version None)
Quarter: 2009Q4

REPORT INFORMATION
  Report Type: 
  Country: None (occurrence: None)
  Receive Date: 20091102
  Receipt Date: 20091020
  Transmission Date: 20100525
  Serious: Yes (Hospitalization)
  Sender: FDA-Public Use
  Company Number: JP-ROCHE-664588

PATIENT
  Age: 21 Year
  Sex: Male

DRUGS (5)
  1. TAMIFLU [Suspect]
     Route: 048
     Dates: start: 20091013, end: 20091015
  2. FLUMARIN [Suspect]
     Indication: DRUG USE FOR UNKNOWN INDICATION
     Dosage: ROUTE REPORTED AS: INTRAVENOUS (NOT OTHERWISE SPECIFIED). DRUG: FLOMOXEF SODIUM.
     Route: 042
  3. MEPTIN [Suspect]
     Indication: DRUG USE FOR UNKNOWN INDICATION
     Dosage: FORM: ORAL FORMULATION (NOT OTHER SPECIFIED). DRUG: PROCATEROL HYDROCHLORIDE.
     Route: 048
  4. DASEN [Suspect]
     Indication: DRUG USE FOR UNKNOWN INDICATION
     Dosage: FORM REPORTED AS: ORAL FORMULATION (NOT OTHERWISE SPECIFIED).
     Route: 048
  5. ASVERIN [Suspect]
     Indication: DRUG USE FOR UNKNOWN INDICATION
     Dosage: FORM REPORTED AS: ORAL FORMULATION (NOT OTHERWISE SPECIFIED). DRUG: TIPEDIPINE HIBENZATE.
     Route: 048

REACTIONS (1)
  - LIVER DISORDER [None]
